FAERS Safety Report 8027550-3 (Version None)
Quarter: 2012Q1

REPORT INFORMATION
  Report Type: 
  Country: None (occurrence: None)
  Receive Date: 20120105
  Receipt Date: 20120105
  Transmission Date: 20120608
  Serious: Yes (Hospitalization)
  Sender: FDA-Public Use
  Company Number: None

PATIENT
  Age: 64 Year
  Sex: Male
  Weight: 74.8 kg

DRUGS (1)
  1. FONDAPARINUX SODIUM [Suspect]
     Dosage: ML SQ
     Route: 058
     Dates: start: 20111127

REACTIONS (2)
  - ANAEMIA [None]
  - MUSCLE HAEMORRHAGE [None]
